FAERS Safety Report 11409629 (Version 11)
Quarter: 2019Q1

REPORT INFORMATION
  Report Type: Report from Study
  Country: US (occurrence: US)
  Receive Date: 20150824
  Receipt Date: 20190330
  Transmission Date: 20190417
  Serious: Yes (Other)
  Sender: FDA-Public Use
  Company Number: PHHY2015US028270

PATIENT
  Age: 50 Year
  Sex: Female
  Weight: 74.8 kg

DRUGS (4)
  1. GILENYA [Suspect]
     Active Substance: FINGOLIMOD HYDROCHLORIDE
     Indication: MULTIPLE SCLEROSIS
     Dosage: 0.5 MG, QD
     Route: 048
  2. MULTIVITAMINS [Concomitant]
     Active Substance: VITAMINS
     Indication: PRODUCT USED FOR UNKNOWN INDICATION
     Dosage: UNK
     Route: 065
     Dates: start: 20190211
  3. TURMERIC [Concomitant]
     Active Substance: HERBALS\TURMERIC
     Indication: PRODUCT USED FOR UNKNOWN INDICATION
     Dosage: UNK
     Route: 065
     Dates: start: 20190211
  4. RITALIN [Concomitant]
     Active Substance: METHYLPHENIDATE HYDROCHLORIDE
     Indication: CIRCADIAN RHYTHM SLEEP DISORDER
     Dosage: UNK
     Route: 065
     Dates: start: 20150429, end: 20150727

REACTIONS (17)
  - Blood bilirubin increased [Recovered/Resolved]
  - Melanocytic naevus [Unknown]
  - Cognitive disorder [Unknown]
  - Pain in jaw [Unknown]
  - Arthralgia [Unknown]
  - Lymphopenia [Unknown]
  - Hemiparesis [Unknown]
  - Leukopenia [Unknown]
  - Alanine aminotransferase increased [Unknown]
  - Muscle spasms [Recovered/Resolved]
  - White blood cell count decreased [Unknown]
  - Neck pain [Recovered/Resolved]
  - Solar lentigo [Unknown]
  - Headache [Recovered/Resolved]
  - Aspartate aminotransferase increased [Unknown]
  - Feeling abnormal [Recovered/Resolved]
  - Seborrhoeic keratosis [Unknown]

NARRATIVE: CASE EVENT DATE: 20140909
